FAERS Safety Report 7505366-1 (Version None)
Quarter: 2011Q2

REPORT INFORMATION
  Report Type: 
  Country: None (occurrence: None)
  Receive Date: 20110526
  Receipt Date: 20110511
  Transmission Date: 20111010
  Serious: Yes (Hospitalization)
  Sender: FDA-Public Use
  Company Number: FR-JNJFOC-20110505712

PATIENT
  Age: 64 Year
  Sex: Male

DRUGS (4)
  1. FUSIDIC ACID [Concomitant]
  2. REMICADE [Suspect]
     Indication: CROHN'S DISEASE
     Route: 042
     Dates: start: 20100326
  3. ACETAMINOPHEN [Suspect]
     Indication: PAIN
     Route: 048
  4. VOLTAREN [Concomitant]

REACTIONS (1)
  - RENAL FAILURE [None]
